FAERS Safety Report 4687199-7 (Version None)
Quarter: 2005Q2

REPORT INFORMATION
  Report Type: 
  Country: None (occurrence: None)
  Receive Date: 20050606
  Receipt Date: 20050523
  Transmission Date: 20051028
  Serious: Yes (Death, Hospitalization)
  Sender: FDA-Public Use
  Company Number: 2005AL002046

PATIENT
  Age: 65 Year
  Sex: Female

DRUGS (3)
  1. KADIAN [Suspect]
  2. UNSPECIFIED ANTI-NAUSEA MEDICATION [Concomitant]
  3. ALCOHOL [Concomitant]

REACTIONS (4)
  - LOSS OF CONSCIOUSNESS [None]
  - OVERDOSE [None]
  - PERIPHERAL COLDNESS [None]
  - RESPIRATORY FAILURE [None]
